FAERS Safety Report 7680578-5 (Version None)
Quarter: 2011Q3

REPORT INFORMATION
  Report Type: 
  Country: None (occurrence: None)
  Receive Date: 20110812
  Receipt Date: 20110808
  Transmission Date: 20111222
  Serious: Yes (Other)
  Sender: FDA-Public Use
  Company Number: US-PFIZER INC-2011152892

PATIENT
  Sex: Female

DRUGS (3)
  1. MEDROL [Suspect]
     Dosage: UNK
  2. LIPITOR [Suspect]
     Dosage: UNK
  3. DALMANE [Suspect]
     Dosage: UNK

REACTIONS (4)
  - BLOOD PRESSURE INCREASED [None]
  - POLLAKIURIA [None]
  - THIRST [None]
  - FLUID RETENTION [None]
